FAERS Safety Report 7463782-0 (Version None)
Quarter: 2011Q2

REPORT INFORMATION
  Report Type: 
  Country: None (occurrence: None)
  Receive Date: 20110506
  Receipt Date: 20110425
  Transmission Date: 20111010
  Serious: Yes (Other)
  Sender: FDA-Public Use
  Company Number: CA-ELI_LILLY_AND_COMPANY-CA201104007403

PATIENT
  Age: 79 Year
  Sex: Female

DRUGS (14)
  1. PLAVIX [Concomitant]
  2. PREDNISONE [Concomitant]
     Dosage: 5 MG, UNK
  3. ATIVAN [Concomitant]
  4. FORTEO [Suspect]
     Indication: OSTEOPOROSIS
     Dosage: 20 UG, QD
     Route: 058
     Dates: start: 20091218
  5. ATACAND [Concomitant]
  6. LIPITOR [Concomitant]
  7. PURINOL [Concomitant]
     Dosage: 200 MG, UNK
  8. PANTOLOC                           /01263202/ [Concomitant]
  9. CALCIUM [Concomitant]
     Dosage: 500 MG, UNK
  10. NITROGLYCERIN SPRAY [Concomitant]
  11. TYLENOL                                 /SCH/ [Concomitant]
     Dosage: UNK, PRN
  12. CYCLOSPORINE [Concomitant]
  13. ALDACTONE [Concomitant]
  14. VITAMIN D [Concomitant]
     Dosage: UNK

REACTIONS (17)
  - LOSS OF CONSCIOUSNESS [None]
  - BLOOD PRESSURE DECREASED [None]
  - HEADACHE [None]
  - TACHYCARDIA [None]
  - BACK PAIN [None]
  - LIMB INJURY [None]
  - PELVIC FRACTURE [None]
  - CHEST PAIN [None]
  - ANGINA PECTORIS [None]
  - CONCUSSION [None]
  - BALANCE DISORDER [None]
  - HYPERCALCAEMIA [None]
  - INJECTION SITE PAIN [None]
  - FALL [None]
  - JOINT INJURY [None]
  - INJECTION SITE HAEMORRHAGE [None]
  - PAIN IN EXTREMITY [None]
